FAERS Safety Report 18500509 (Version 1)
Quarter: 2020Q4

REPORT INFORMATION
  Report Type: Spontaneous
  Country: US (occurrence: US)
  Receive Date: 20201113
  Receipt Date: 20201113
  Transmission Date: 20210114
  Serious: No
  Sender: FDA-Public Use
  Company Number: US-BAXTER-2020BAX022946

PATIENT
  Sex: Female

DRUGS (4)
  1. 0.9% SODIUM CHLORIDE INJECTION [Suspect]
     Active Substance: SODIUM CHLORIDE
     Dosage: NORMAL SALINE
     Route: 042
     Dates: start: 20201022, end: 20201022
  2. INJECTAFER [Suspect]
     Active Substance: FERRIC CARBOXYMALTOSE
     Indication: PRODUCT USED FOR UNKNOWN INDICATION
     Dosage: INJECTAFER 750MG, 1ST DOSE
     Route: 042
     Dates: start: 20201015, end: 20201015
  3. INJECTAFER [Suspect]
     Active Substance: FERRIC CARBOXYMALTOSE
     Dosage: INJECTAFER 750MG, 2ND DOSE
     Route: 042
     Dates: start: 20201022, end: 20201022
  4. 0.9% SODIUM CHLORIDE INJECTION [Suspect]
     Active Substance: SODIUM CHLORIDE
     Indication: PRODUCT USED FOR UNKNOWN INDICATION
     Dosage: NORMAL SALINE
     Route: 042
     Dates: start: 20201015, end: 20201015

REACTIONS (2)
  - Injection site pruritus [Recovering/Resolving]
  - Rash [Recovering/Resolving]

NARRATIVE: CASE EVENT DATE: 20201015
